FAERS Safety Report 8597767-8 (Version None)
Quarter: 2012Q3

REPORT INFORMATION
  Report Type: 
  Country: None (occurrence: None)
  Receive Date: 20120816
  Receipt Date: 20120813
  Transmission Date: 20120928
  Serious: Yes (Other)
  Sender: FDA-Public Use
  Company Number: PHHY2012CA053435

PATIENT
  Sex: Female

DRUGS (3)
  1. ZOLEDRONOC ACID [Suspect]
     Dosage: ONCE ANNUALLY
     Route: 042
     Dates: start: 20100715
  2. ZOLEDRONOC ACID [Suspect]
     Indication: OSTEOPOROSIS
     Dosage: ONCE ANNUALLY
     Route: 042
     Dates: start: 20090709
  3. ZOLEDRONOC ACID [Suspect]
     Dosage: ONCE ANNUALLY
     Route: 042
     Dates: start: 20110706

REACTIONS (3)
  - TEMPOROMANDIBULAR JOINT SYNDROME [None]
  - PAIN IN JAW [None]
  - JOINT CREPITATION [None]
